FAERS Safety Report 9411864 (Version 1)
Quarter: 2013Q3

REPORT INFORMATION
  Report Type: Spontaneous
  Country: US (occurrence: None)
  Receive Date: 20130719
  Receipt Date: 20130719
  Transmission Date: 20140515
  Serious: Yes (Hospitalization)
  Sender: FDA-Public Use
  Company Number: None

PATIENT
  Age: 65 Year
  Sex: Male
  Weight: 103.9 kg

DRUGS (2)
  1. AMOXICILLIN/CLAVULANATE [Suspect]
     Indication: VASCULAR OPERATION
     Route: 048
     Dates: start: 20130709, end: 20130714
  2. CEPHALEXIN [Suspect]
     Route: 048
     Dates: start: 20130714, end: 20130715

REACTIONS (1)
  - Erythema multiforme [None]
